FAERS Safety Report 6317922-7 (Version None)
Quarter: 2009Q3

REPORT INFORMATION
  Report Type: 
  Country: None (occurrence: None)
  Receive Date: 20090821
  Receipt Date: 20090814
  Transmission Date: 20100115
  Serious: Yes (Hospitalization, Disabling)
  Sender: FDA-Public Use
  Company Number: DK-JNJFOC-20090804649

PATIENT
  Sex: Female
  Weight: 60 kg

DRUGS (2)
  1. RISPERDAL [Suspect]
     Indication: PSYCHOTIC DISORDER
     Route: 048
  2. YASMIN [Interacting]
     Indication: MENSTRUATION IRREGULAR
     Route: 048

REACTIONS (3)
  - DRUG INTERACTION [None]
  - HEADACHE [None]
  - HEMIPARESIS [None]
